FAERS Safety Report 24558067 (Version 1)
Quarter: 2024Q4

REPORT INFORMATION
  Report Type: Spontaneous
  Country: JP (occurrence: JP)
  Receive Date: 20241028
  Receipt Date: 20241028
  Transmission Date: 20250114
  Serious: Yes (Hospitalization)
  Sender: RIGEL PHARMACEUTICALS
  Company Number: JP-KISSEI-TL20240614_P_1

PATIENT

DRUGS (3)
  1. TAVALISSE [Suspect]
     Active Substance: FOSTAMATINIB
     Indication: Immune thrombocytopenia
     Dosage: UNK
     Route: 048
  2. UNSPECIFIED INGREDIENT [Concomitant]
     Active Substance: UNSPECIFIED INGREDIENT
     Indication: Product used for unknown indication
     Dosage: UNK
     Route: 065
  3. ROMIPLOSTIM [Concomitant]
     Active Substance: ROMIPLOSTIM
     Indication: Product used for unknown indication
     Dosage: UNK
     Route: 058

REACTIONS (2)
  - Bone pain [Unknown]
  - Pneumonia [Unknown]
